FAERS Safety Report 6370828-X (Version None)
Quarter: 2009Q3

REPORT INFORMATION
  Report Type: 
  Country: None (occurrence: None)
  Receive Date: 20090923
  Receipt Date: 20070605
  Transmission Date: 20100115
  Serious: No
  Sender: FDA-Public Use
  Company Number: US-ASTRAZENECA-2006UW24678

PATIENT
  Age: 16882 Day
  Sex: Female
  Weight: 63 kg

DRUGS (22)
  1. SEROQUEL [Suspect]
     Indication: SLEEP DISORDER
     Route: 048
     Dates: start: 20040408, end: 20060818
  2. SEROQUEL [Suspect]
     Indication: MAJOR DEPRESSION
     Route: 048
     Dates: start: 20040408, end: 20060818
  3. SEROQUEL [Suspect]
     Route: 048
     Dates: start: 20040408, end: 20060818
  4. SEROQUEL [Suspect]
     Route: 048
     Dates: start: 20040408, end: 20060818
  5. SEROQUEL [Suspect]
     Dosage: 50-150 MG
     Route: 048
  6. SEROQUEL [Suspect]
     Dosage: 50-150 MG
     Route: 048
  7. ZYPREXA [Concomitant]
  8. AVALIDE [Concomitant]
  9. MIRALAX [Concomitant]
  10. GLYBURIDE [Concomitant]
  11. BIAXIN [Concomitant]
  12. Z-PAK [Concomitant]
  13. LIPITOR [Concomitant]
  14. TRAZODONE [Concomitant]
  15. LISINOPRIL [Concomitant]
  16. DILTIAZEM [Concomitant]
  17. OMEPRAZOLE [Concomitant]
  18. AVANDIA [Concomitant]
  19. METFORMIN HCL [Concomitant]
  20. CYMBALTA [Concomitant]
  21. POTASSIUM CHLORIDE [Concomitant]
  22. LORAZEPAM [Concomitant]

REACTIONS (18)
  - ABDOMINAL DISTENSION [None]
  - ABDOMINAL PAIN UPPER [None]
  - AMENORRHOEA [None]
  - BLOOD CHOLESTEROL INCREASED [None]
  - CONSTIPATION [None]
  - DEMENTIA [None]
  - EAR DISCOMFORT [None]
  - GASTROOESOPHAGEAL REFLUX DISEASE [None]
  - HEADACHE [None]
  - JOINT INJURY [None]
  - MAJOR DEPRESSION [None]
  - OEDEMA PERIPHERAL [None]
  - ONYCHOMYCOSIS [None]
  - PAIN IN EXTREMITY [None]
  - SINUSITIS [None]
  - VERTIGO [None]
  - VISION BLURRED [None]
  - WEIGHT INCREASED [None]
